FAERS Safety Report 10226336 (Version 2)
Quarter: 2014Q2

REPORT INFORMATION
  Report Type: Spontaneous
  Country: US (occurrence: US)
  Receive Date: 20140609
  Receipt Date: 20140626
  Transmission Date: 20141212
  Serious: Yes (Hospitalization)
  Sender: FDA-Public Use
  Company Number: US-ACTELION-A-US2014-099729

PATIENT
  Age: 89 Year
  Sex: Male

DRUGS (3)
  1. OPSUMIT [Suspect]
     Indication: PULMONARY ARTERIAL HYPERTENSION
     Dosage: 10 MG, QD
     Route: 048
     Dates: start: 20131203
  2. ASA [Suspect]
  3. PLAVIX [Suspect]

REACTIONS (4)
  - Epistaxis [Recovered/Resolved]
  - White blood cell count increased [Recovered/Resolved]
  - Leukocytosis [Recovered/Resolved]
  - Anaemia [Recovered/Resolved]
